FAERS Safety Report 7269609-4 (Version None)
Quarter: 2011Q1

REPORT INFORMATION
  Report Type: 
  Country: None (occurrence: None)
  Receive Date: 20110124
  Receipt Date: 20110114
  Transmission Date: 20110831
  Serious: No
  Sender: FDA-Public Use
  Company Number: NXG-11-001

PATIENT
  Sex: Male
  Weight: 92.5338 kg

DRUGS (10)
  1. MAGNESIUM [Concomitant]
  2. LOVASTATIN [Concomitant]
  3. ALPRAZOLAM [Concomitant]
  4. METFORMIN HCL [Concomitant]
  5. LOVAZA [Concomitant]
  6. POLYETHYLENE GLYCOL 3350NF(PEG), NEXGEN PHARMA, INC. [Suspect]
     Indication: CONSTIPATION
     Dosage: 17 GM IN 8OX WATER/DAY; ONE DOSE
  7. ATENOLOL [Concomitant]
  8. HUMAN INSULIN [Concomitant]
  9. LISINOPRIL [Concomitant]
  10. KLOR-CON [Concomitant]

REACTIONS (5)
  - ERYTHEMA [None]
  - DRUG INTERACTION [None]
  - DYSPNOEA [None]
  - HYPOPHAGIA [None]
  - SWOLLEN TONGUE [None]
